FAERS Safety Report 10147161 (Version 1)
Quarter: 2014Q2

REPORT INFORMATION
  Report Type: Report from Study
  Country: US (occurrence: US)
  Receive Date: 20140501
  Receipt Date: 20140501
  Transmission Date: 20141212
  Serious: Yes (Other)
  Sender: FDA-Public Use
  Company Number: US-ABBVIE-14P-163-1230815-00

PATIENT
  Sex: Female

DRUGS (4)
  1. KALETRA [Suspect]
     Indication: ANTIRETROVIRAL THERAPY
     Route: 048
     Dates: start: 20140404
  2. ZIAGEN [Suspect]
     Indication: ANTIRETROVIRAL THERAPY
     Route: 048
  3. EPIVIR [Suspect]
     Indication: ANTIRETROVIRAL THERAPY
     Route: 048
  4. ISENTRESS [Suspect]
     Indication: ANTIRETROVIRAL THERAPY
     Route: 048
     Dates: end: 20140404

REACTIONS (1)
  - Abortion spontaneous [Unknown]
